FAERS Safety Report 6083413-4 (Version None)
Quarter: 2009Q1

REPORT INFORMATION
  Report Type: 
  Country: None (occurrence: None)
  Receive Date: 20090217
  Receipt Date: 20090202
  Transmission Date: 20090719
  Serious: Yes (Other)
  Sender: FDA-Public Use
  Company Number: 231231K09USA

PATIENT
  Age: 46 Year
  Sex: Female

DRUGS (8)
  1. REBIF [Suspect]
     Indication: MULTIPLE SCLEROSIS
     Dosage: 44 MCG, 3 IN 1 WEEKS, SUBCUTANEOUS
     Route: 058
     Dates: start: 20081201
  2. VITAMIN B12 [Concomitant]
  3. SOMA [Concomitant]
  4. FISH OIL (FISH OIL) [Concomitant]
  5. TYLENOL (COTYLENOL) [Concomitant]
  6. PRIMIDONE [Concomitant]
  7. IBUPROFEN [Concomitant]
  8. ALEVE (CAPLET) [Concomitant]

REACTIONS (1)
  - CONVULSION [None]
